FAERS Safety Report 7688765-7 (Version None)
Quarter: 2011Q3

REPORT INFORMATION
  Report Type: 
  Country: None (occurrence: None)
  Receive Date: 20110817
  Receipt Date: 20110808
  Transmission Date: 20111222
  Serious: Yes (Other)
  Sender: FDA-Public Use
  Company Number: PHHY2011BR72273

PATIENT
  Sex: Female

DRUGS (2)
  1. PREDNISONE [Concomitant]
  2. ENALAPRIL MALEATE [Suspect]
     Route: 048

REACTIONS (3)
  - LUNG DISORDER [None]
  - FATIGUE [None]
  - CARDIAC DISORDER [None]
